FAERS Safety Report 6282622-9 (Version None)
Quarter: 2009Q3

REPORT INFORMATION
  Report Type: 
  Country: None (occurrence: None)
  Receive Date: 20090724
  Receipt Date: 20090714
  Transmission Date: 20100115
  Serious: Yes (Other)
  Sender: FDA-Public Use
  Company Number: PHHY2009CH29528

PATIENT
  Age: 41 Year
  Sex: Male

DRUGS (2)
  1. RITALIN [Suspect]
     Dosage: 20-30 MG/DAY
     Route: 048
     Dates: start: 20081001
  2. ZOLOFT [Suspect]
     Dosage: 50 MG/DAY

REACTIONS (1)
  - LYMPHOPENIA [None]
